FAERS Safety Report 6378346-X (Version None)
Quarter: 2009Q3

REPORT INFORMATION
  Report Type: 
  Country: None (occurrence: None)
  Receive Date: 20090925
  Receipt Date: 20090528
  Transmission Date: 20100115
  Serious: Yes (Other)
  Sender: FDA-Public Use
  Company Number: US-ASTRAZENECA-2007UW09769

PATIENT
  Age: 644 Month
  Sex: Male

DRUGS (3)
  1. SEROQUEL [Suspect]
     Indication: INSOMNIA
     Dosage: 300 TO 900 MG
     Route: 048
     Dates: start: 20010101
  2. SEROQUEL [Suspect]
     Indication: BIPOLAR I DISORDER
     Dosage: 300 TO 900 MG
     Route: 048
     Dates: start: 20010101
  3. SEROQUEL [Suspect]
     Indication: PSYCHOTIC DISORDER
     Dosage: 300 TO 900 MG
     Route: 048
     Dates: start: 20010101

REACTIONS (1)
  - PANCREATITIS ACUTE [None]
